FAERS Safety Report 6760249-X (Version None)
Quarter: 2010Q2

REPORT INFORMATION
  Report Type: 
  Country: None (occurrence: None)
  Receive Date: 20100608
  Receipt Date: 20090923
  Transmission Date: 20101027
  Serious: Yes (Life-Threatening, Hospitalization, Disabling)
  Sender: FDA-Public Use
  Company Number: US-BRISTOL-MYERS SQUIBB COMPANY-12412136

PATIENT
  Age: 41 Year
  Sex: Female

DRUGS (3)
  1. SUSTIVA [Suspect]
     Indication: HIV INFECTION
     Dosage: AT HOUR OF SLEEP
     Route: 048
     Dates: start: 20030528, end: 20030902
  2. TRIZIVIR [Suspect]
     Indication: HIV INFECTION
     Route: 048
  3. PRENATAL VITAMINS [Concomitant]

REACTIONS (1)
  - HEPATIC FAILURE [None]
